FAERS Safety Report 9156208 (Version 4)
Quarter: 2013Q2

REPORT INFORMATION
  Report Type: Report from Study
  Country: JP (occurrence: JP)
  Receive Date: 20130311
  Receipt Date: 20130627
  Transmission Date: 20140414
  Serious: Yes (Other)
  Sender: FDA-Public Use
  Company Number: JP-OTSUKA-JP-2013-10577

PATIENT
  Sex: Male
  Weight: 61.2 kg

DRUGS (5)
  1. SAMSCA [Suspect]
     Indication: FLUID RETENTION
     Dosage: 3.75 MG MILLIGRAM(S), QAM
     Route: 048
     Dates: start: 20130212, end: 20130219
  2. THYRADIN S [Concomitant]
     Indication: HYPOTHYROIDISM
     Dosage: 200 MCG, DAILY DOSE
     Route: 048
     Dates: start: 20130203
  3. PIMOBENDAN [Concomitant]
     Indication: CARDIAC FAILURE
     Dosage: 1.25 MG MILLIGRAM(S), DAILY DOSE
     Route: 048
     Dates: start: 20130205
  4. HANP [Concomitant]
     Indication: CARDIAC FAILURE
     Dosage: 0.013 UG/KG/MIN, DAILY DOSE
     Route: 042
     Dates: start: 20130205
  5. ARTIST [Concomitant]
     Indication: CARDIAC FAILURE
     Dosage: 1.25 MG MILLIGRAM(S), DAILY DOSE
     Route: 048
     Dates: start: 20130209

REACTIONS (1)
  - Blood urea increased [Unknown]
